FAERS Safety Report 7940625-X (Version None)
Quarter: 2011Q4

REPORT INFORMATION
  Report Type: 
  Country: None (occurrence: None)
  Receive Date: 20111114
  Receipt Date: 20110511
  Transmission Date: 20120403
  Serious: Yes (Other)
  Sender: FDA-Public Use
  Company Number: 2011S1000337

PATIENT

DRUGS (2)
  1. HMG COA REDUCTASE INHIBITORS [Concomitant]
  2. CUBICIN [Suspect]
     Dosage: IV
     Route: 042

REACTIONS (1)
  - RHABDOMYOLYSIS [None]
